FAERS Safety Report 7311450-8 (Version None)
Quarter: 2011Q1

REPORT INFORMATION
  Report Type: 
  Country: None (occurrence: None)
  Receive Date: 20110216
  Receipt Date: 20110216
  Transmission Date: 20110831
  Serious: Yes (Other)
  Sender: FDA-Public Use
  Company Number: None

PATIENT
  Age: 56 Year
  Sex: Female
  Weight: 65.318 kg

DRUGS (8)
  1. XANAX [Concomitant]
  2. DIOVAN [Concomitant]
  3. SEROQUEL [Suspect]
     Indication: INSOMNIA
     Dosage: 50 MG 1/DAY AT BEDTIME PO
     Route: 048
     Dates: start: 20090101, end: 20110101
  4. LYRICA [Concomitant]
  5. LUNESTA [Suspect]
     Indication: INSOMNIA
     Dosage: 3MG 1/DAY AT NIGHTTIME PO
     Route: 048
     Dates: start: 20080101, end: 20110101
  6. ZOLOFT [Concomitant]
  7. GAD [Concomitant]
  8. ATENOLOL [Concomitant]

REACTIONS (3)
  - ANXIETY [None]
  - HEART RATE INCREASED [None]
  - PANIC DISORDER [None]
